FAERS Safety Report 25058704 (Version 2)
Quarter: 2025Q1

REPORT INFORMATION
  Report Type: Spontaneous
  Country: GB (occurrence: GB)
  Receive Date: 20250310
  Receipt Date: 20250317
  Transmission Date: 20250409
  Serious: Yes (Death, Other)
  Sender: NOVARTIS
  Company Number: GB-002147023-NVSC2025GB039616

PATIENT
  Sex: Male

DRUGS (1)
  1. TEGRETOL [Suspect]
     Active Substance: CARBAMAZEPINE
     Indication: Epilepsy
     Route: 065

REACTIONS (6)
  - Seizure [Fatal]
  - Cardiac arrest [Fatal]
  - Brain hypoxia [Fatal]
  - Injury [Fatal]
  - Fall [Fatal]
  - Product supply issue [Unknown]

NARRATIVE: CASE EVENT DATE: 20241201
